FAERS Safety Report 24119350 (Version 1)
Quarter: 2024Q3

REPORT INFORMATION
  Report Type: Spontaneous
  Country: US (occurrence: None)
  Receive Date: 20240718
  Receipt Date: 20240718
  Transmission Date: 20241016
  Serious: Yes (Other)
  Sender: Public
  Company Number: None

PATIENT
  Age: 41 Year
  Sex: Female

DRUGS (2)
  1. OTEZLA [Suspect]
     Active Substance: APREMILAST
     Indication: Psoriasis
     Dosage: OTHER QUANTITY : STARTER PACK;?OTHER FREQUENCY : OTHER;?
     Route: 048
     Dates: start: 20240507
  2. NOVOLOG [Concomitant]
     Active Substance: INSULIN ASPART

REACTIONS (3)
  - Epistaxis [None]
  - Mood swings [None]
  - Hypersensitivity [None]

NARRATIVE: CASE EVENT DATE: 20240607
